FAERS Safety Report 4870660-X (Version None)
Quarter: 2006Q1

REPORT INFORMATION
  Report Type: 
  Country: None (occurrence: None)
  Receive Date: 20060103
  Receipt Date: 20051222
  Transmission Date: 20060701
  Serious: Yes (Hospitalization)
  Sender: FDA-Public Use
  Company Number: FR-JNJFOC-20051205008

PATIENT
  Age: 53 Year
  Sex: Male

DRUGS (1)
  1. DURAGESIC-100 [Suspect]
     Route: 062

REACTIONS (1)
  - URTICARIA [None]
